FAERS Safety Report 18672404 (Version 23)
Quarter: 2022Q2

REPORT INFORMATION
  Report Type: Report from Study
  Country: AR (occurrence: AR)
  Receive Date: 20201228
  Receipt Date: 20220526
  Transmission Date: 20220721
  Serious: Yes (Other)
  Sender: FDA-Public Use
  Company Number: NVSC2020AR002546

PATIENT
  Age: 47 Year
  Sex: Male

DRUGS (5)
  1. COSENTYX [Suspect]
     Active Substance: SECUKINUMAB
     Indication: Ankylosing spondylitis
     Dosage: 150 MG, QMO
     Route: 058
     Dates: start: 20190425
  2. COSENTYX [Suspect]
     Active Substance: SECUKINUMAB
     Indication: Axial spondyloarthritis
     Dosage: 150 MG, QMO
     Route: 058
     Dates: start: 20190820
  3. COSENTYX [Suspect]
     Active Substance: SECUKINUMAB
     Dosage: 150 MG, QMO
     Route: 058
  4. COSENTYX [Suspect]
     Active Substance: SECUKINUMAB
     Dosage: 150 MG, QMO
     Route: 058
  5. COSENTYX [Suspect]
     Active Substance: SECUKINUMAB
     Dosage: 150 MG, QMO
     Route: 058

REACTIONS (36)
  - Uveitis [Not Recovered/Not Resolved]
  - Blindness unilateral [Not Recovered/Not Resolved]
  - Condition aggravated [Unknown]
  - Vision blurred [Unknown]
  - Animal bite [Recovering/Resolving]
  - Joint swelling [Unknown]
  - Hand fracture [Recovering/Resolving]
  - Gait disturbance [Unknown]
  - Visual impairment [Unknown]
  - Malaise [Unknown]
  - General physical health deterioration [Unknown]
  - Joint stiffness [Recovering/Resolving]
  - Chest pain [Not Recovered/Not Resolved]
  - Application site swelling [Not Recovered/Not Resolved]
  - Neck pain [Not Recovered/Not Resolved]
  - Pyrexia [Not Recovered/Not Resolved]
  - Fall [Not Recovered/Not Resolved]
  - Limb injury [Not Recovered/Not Resolved]
  - Eye disorder [Unknown]
  - Ocular hyperaemia [Unknown]
  - Arthralgia [Not Recovered/Not Resolved]
  - Peripheral swelling [Unknown]
  - Pain [Unknown]
  - Eye swelling [Recovered/Resolved]
  - Pain in extremity [Unknown]
  - Inflammation [Unknown]
  - Accident [Unknown]
  - Bone pain [Unknown]
  - Nail avulsion [Unknown]
  - Disease recurrence [Unknown]
  - Disease progression [Unknown]
  - Spinal pain [Unknown]
  - Tendon injury [Unknown]
  - Hypokinesia [Unknown]
  - Feeling abnormal [Unknown]
  - Drug ineffective [Unknown]

NARRATIVE: CASE EVENT DATE: 20200108
